FAERS Safety Report 4497617-5 (Version None)
Quarter: 2004Q4

REPORT INFORMATION
  Report Type: 
  Country: None (occurrence: None)
  Receive Date: 20041105
  Receipt Date: 20041020
  Transmission Date: 20050328
  Serious: Yes (Other)
  Sender: FDA-Public Use
  Company Number: DE-JNJFOC-20031204740

PATIENT
  Sex: Female

DRUGS (7)
  1. SIROS [Suspect]
     Indication: DRUG USE FOR UNKNOWN INDICATION
     Dates: start: 20031107
  2. CLINOFEM [Concomitant]
  3. ERYFER [Concomitant]
     Dates: start: 20040302, end: 20040719
  4. ERYFER [Concomitant]
     Dates: start: 20040302, end: 20040719
  5. ERYFER [Concomitant]
     Dates: start: 20040302, end: 20040719
  6. MAGNESIA [Concomitant]
     Dates: start: 20040209, end: 20040719
  7. NYSTATIN [Concomitant]
     Dates: start: 20040603, end: 20040610

REACTIONS (2)
  - DRUG EXPOSURE DURING PREGNANCY [None]
  - PLACENTAL INSUFFICIENCY [None]
